FAERS Safety Report 12586990 (Version 1)
Quarter: 2016Q3

REPORT INFORMATION
  Report Type: Spontaneous
  Country: US (occurrence: None)
  Receive Date: 20160722
  Receipt Date: 20160722
  Transmission Date: 20161109
  Serious: Yes (Hospitalization)
  Sender: FDA-Public Use
  Company Number: None

PATIENT
  Age: 55 Year
  Sex: Male
  Weight: 114.39 kg

DRUGS (14)
  1. LASIX [Concomitant]
     Active Substance: FUROSEMIDE
  2. ESCITALPRAM OXALATE (LEXAPRO) [Concomitant]
  3. DACLATASVIR 60MG BRISTOL-MYERS SQUIBB [Suspect]
     Active Substance: DACLATASVIR
     Indication: HEPATITIS C
     Route: 048
     Dates: start: 20160130, end: 20160423
  4. SOFOSBUVIR 400 MG GILEAD SCIENCES, INC. [Suspect]
     Active Substance: SOFOSBUVIR
  5. PROAIR HFA [Concomitant]
     Active Substance: ALBUTEROL SULFATE
  6. CLONIDINE HCL (CATAPRES) [Concomitant]
  7. CLOTRIMAZOLE (LOTRIMIN) [Concomitant]
  8. METHADONE HCL (METHADONE ORAL) [Concomitant]
  9. LIDOCAINE (LIDODERM) [Concomitant]
  10. LACTULOSE (CHRONULAC) [Concomitant]
  11. ALBUTEROL (PROVENTIL, VENTOLIN) [Concomitant]
  12. TIOTROPIUM (SPIRIVA) [Concomitant]
  13. CO-TRIMOXAZOLE (SULFAMETHOXAZOLE/TRIMETHOPRIM) [Concomitant]
  14. DELTASONE [Concomitant]
     Active Substance: PREDNISONE

REACTIONS (2)
  - Staphylococcus test positive [None]
  - Pneumonitis [None]

NARRATIVE: CASE EVENT DATE: 20160324
